FAERS Safety Report 5412259-2 (Version None)
Quarter: 2007Q3

REPORT INFORMATION
  Report Type: 
  Country: None (occurrence: None)
  Receive Date: 20070810
  Receipt Date: 20070810
  Transmission Date: 20080115
  Serious: Yes (Hospitalization)
  Sender: FDA-Public Use
  Company Number: None

PATIENT
  Age: 51 Year
  Sex: Male

DRUGS (4)
  1. METHADONE HCL [Suspect]
     Indication: PAIN
     Dosage: 20MG QID PO
     Route: 048
     Dates: start: 20060801
  2. VENLAFAXINE HCL [Suspect]
     Indication: DEPRESSION
     Dosage: 37.5MG EVERY DAY PO
     Route: 048
     Dates: start: 20070525
  3. DIAZEPAM [Concomitant]
  4. TRAZODONE HCL [Concomitant]

REACTIONS (3)
  - MENTAL STATUS CHANGES [None]
  - PNEUMONIA ASPIRATION [None]
  - RESPIRATORY DISTRESS [None]
